FAERS Safety Report 4898452-6 (Version None)
Quarter: 2006Q1

REPORT INFORMATION
  Report Type: 
  Country: None (occurrence: None)
  Receive Date: 20060130
  Receipt Date: 20060116
  Transmission Date: 20060701
  Serious: Yes (Other)
  Sender: FDA-Public Use
  Company Number: 2006005553

PATIENT
  Age: 35 Year
  Sex: Female
  Weight: 108 kg

DRUGS (2)
  1. DEPO-PROVERA [Suspect]
     Indication: CONTRACEPTION
     Dosage: 150 MG (150 MG, 1ST INJECTION, EVERY 12 WEEKS), INTRAMUSCULAR ; 150 MG (150 MG, LAST INJECTION), INT
     Route: 030
     Dates: start: 20000124, end: 20000124
  2. DEPO-PROVERA [Suspect]
     Indication: CONTRACEPTION
     Dosage: 150 MG (150 MG, 1ST INJECTION, EVERY 12 WEEKS), INTRAMUSCULAR ; 150 MG (150 MG, LAST INJECTION), INT
     Route: 030
     Dates: start: 20001010, end: 20001010

REACTIONS (1)
  - BENIGN INTRACRANIAL HYPERTENSION [None]
